FAERS Safety Report 10064704 (Version 1)
Quarter: 2014Q2

REPORT INFORMATION
  Report Type: Spontaneous
  Country: US (occurrence: None)
  Receive Date: 20140407
  Receipt Date: 20140407
  Transmission Date: 20141212
  Serious: No
  Sender: FDA-Public Use
  Company Number: None

PATIENT
  Age: 54 Year
  Sex: Male
  Weight: 88.3 kg

DRUGS (2)
  1. VANCOMYCIN [Suspect]
     Indication: STAPHYLOCOCCAL INFECTION
     Route: 042
     Dates: start: 20131226, end: 20140102
  2. PIPERACILLIN/TAZOBACTAM [Suspect]
     Indication: BACTERAEMIA
     Route: 042
     Dates: start: 20131226, end: 20140102

REACTIONS (1)
  - Renal tubular necrosis [None]
